FAERS Safety Report 8957474 (Version 1)
Quarter: 2012Q4

REPORT INFORMATION
  Report Type: 
  Country: CH (occurrence: CH)
  Receive Date: 20121211
  Receipt Date: 20121211
  Transmission Date: 20130627
  Serious: Yes (Hospitalization)
  Sender: FDA-Public Use
  Company Number: PHHY2012CH108618

PATIENT
  Age: 71 Year
  Sex: Female

DRUGS (12)
  1. TEGRETOL [Suspect]
     Dosage: 500 mg, daily
     Route: 048
     Dates: start: 20120628, end: 20121010
  2. TEGRETOL [Suspect]
     Dosage: 200 mg, TID
     Route: 048
     Dates: start: 201210
  3. NEBILET PLUS [Concomitant]
     Indication: ESSENTIAL HYPERTENSION
     Route: 048
     Dates: start: 20121015, end: 201210
  4. PLAVIX [Concomitant]
     Indication: ARTERIOSCLEROSIS
     Dosage: 75 mg, QD
     Route: 048
     Dates: start: 201006
  5. MICARDIS [Concomitant]
     Dosage: 80 mg, QD
     Route: 048
     Dates: start: 201006
  6. INEGY [Concomitant]
     Dosage: 1 DF, QD
     Route: 048
     Dates: start: 201006
  7. ZANIDIP [Concomitant]
     Dosage: 10 mg, QD
     Route: 048
  8. PANTOZOL [Concomitant]
     Dosage: 40 mg, BID
     Route: 048
  9. GLUTRIL [Concomitant]
     Dosage: 25 mg, QD
     Route: 048
  10. LEXOTANIL [Concomitant]
     Dosage: 1.5 mg, QD
     Route: 048
     Dates: end: 201210
  11. AERIUS [Concomitant]
     Dosage: 5 mg, QD
     Route: 048
     Dates: end: 201210
  12. SERETIDE [Concomitant]
     Dosage: 250 ug, BID
     Route: 055
     Dates: start: 201111

REACTIONS (5)
  - Hypokalaemia [Recovered/Resolved]
  - Hyponatraemia [Recovering/Resolving]
  - Somnolence [Recovered/Resolved]
  - Nausea [Recovered/Resolved]
  - Dizziness [Recovered/Resolved]
